FAERS Safety Report 8826569 (Version 1)
Quarter: 2012Q4

REPORT INFORMATION
  Report Type: 
  Country: ES (occurrence: ES)
  Receive Date: 20121007
  Receipt Date: 20121007
  Transmission Date: 20130627
  Serious: Yes (Hospitalization)
  Sender: FDA-Public Use
  Company Number: ES-MYLANLABS-2012S1020108

PATIENT
  Age: 86 Year
  Sex: Male

DRUGS (9)
  1. LEVOFLOXACIN [Suspect]
     Indication: PNEUMONIA
     Dosage: 500 mg/day for the first 24 hours
     Route: 042
  2. LEVOFLOXACIN [Suspect]
     Indication: PNEUMONIA
     Dosage: 500 mg/day
     Route: 048
  3. ALLOPURINOL [Concomitant]
     Dosage: 300 mg/day
     Route: 065
  4. ALPRAZOLAM [Concomitant]
     Dosage: 0.5 mg/day
     Route: 065
  5. OMEPRAZOLE [Concomitant]
     Dosage: 20 mg/day
     Route: 065
  6. TORASEMIDE [Concomitant]
     Dosage: 15 mg/day
     Route: 065
  7. GABAPENTIN [Concomitant]
     Dosage: 300 mg/day
     Route: 065
  8. PREGABALIN [Concomitant]
     Dosage: 75 mg/day
     Route: 065
  9. PREDNISONE [Concomitant]
     Dosage: 10mg in a descending dose
     Route: 065

REACTIONS (5)
  - Thrombocytopenia [Recovering/Resolving]
  - Renal failure [Recovered/Resolved]
  - Gastrointestinal haemorrhage [Recovered/Resolved]
  - Purpura [Recovering/Resolving]
  - Petechiae [Recovering/Resolving]
